FAERS Safety Report 5034165-8 (Version None)
Quarter: 2006Q2

REPORT INFORMATION
  Report Type: 
  Country: None (occurrence: None)
  Receive Date: 20060621
  Receipt Date: 20060614
  Transmission Date: 20061013
  Serious: Yes (Other)
  Sender: FDA-Public Use
  Company Number: 006886

PATIENT
  Age: 19 Year
  Sex: Female

DRUGS (3)
  1. CLARAVIS [Suspect]
     Dosage: SEE IMAGE, ORAL
     Route: 048
     Dates: start: 20050804, end: 20051206
  2. CLARAVIS [Suspect]
     Dosage: SEE IMAGE, ORAL
     Route: 048
     Dates: start: 20050804, end: 20051206
  3. ORTHO TRI-CYCLEN [Concomitant]

REACTIONS (2)
  - DRUG EXPOSURE BEFORE PREGNANCY [None]
  - PREGNANCY [None]
